FAERS Safety Report 5465205-X (Version None)
Quarter: 2007Q3

REPORT INFORMATION
  Report Type: 
  Country: None (occurrence: None)
  Receive Date: 20070920
  Receipt Date: 20070905
  Transmission Date: 20080115
  Serious: Yes (Hospitalization)
  Sender: FDA-Public Use
  Company Number: 2007S1008358

PATIENT
  Age: 54 Year
  Sex: Female

DRUGS (5)
  1. LEVOTHYROXINE SODIUM [Suspect]
     Indication: HYPOTHYROIDISM
     Dosage: 50 UG;DAILY;ORAL
     Route: 048
     Dates: start: 20070109
  2. ESTRACE VAGINAL [Concomitant]
  3. NASACORT [Concomitant]
  4. ESTRADIOL [Concomitant]
  5. TESTOSTERONE [Concomitant]

REACTIONS (3)
  - BLOOD THYROID STIMULATING HORMONE DECREASED [None]
  - PALPITATIONS [None]
  - THERAPEUTIC RESPONSE INCREASED [None]
